FAERS Safety Report 6169596-6 (Version None)
Quarter: 2009Q2

REPORT INFORMATION
  Report Type: 
  Country: None (occurrence: None)
  Receive Date: 20090428
  Receipt Date: 20090424
  Transmission Date: 20091009
  Serious: Yes (Hospitalization, Other)
  Sender: FDA-Public Use
  Company Number: US-BRISTOL-MYERS SQUIBB COMPANY-14600753

PATIENT
  Age: 51 Year
  Sex: Male
  Weight: 80 kg

DRUGS (2)
  1. REYATAZ [Suspect]
     Indication: HIV INFECTION
     Dosage: STARTED-200MGQD.INCREASED TO 300MG-2 CAPS QD IN 2007.THEN 2CAPS BID.REDUCED TO 300 MG-2 CAPS QD.
  2. TRUVADA [Concomitant]
     Indication: HIV INFECTION

REACTIONS (6)
  - DEPRESSION [None]
  - DIABETES MELLITUS [None]
  - DIABETES MELLITUS INADEQUATE CONTROL [None]
  - GLYCOSYLATED HAEMOGLOBIN INCREASED [None]
  - MEDICATION ERROR [None]
  - WEIGHT DECREASED [None]
